FAERS Safety Report 6247690-9 (Version None)
Quarter: 2009Q2

REPORT INFORMATION
  Report Type: 
  Country: None (occurrence: None)
  Receive Date: 20090626
  Receipt Date: 20090615
  Transmission Date: 20091009
  Serious: Yes (Hospitalization, Other)
  Sender: FDA-Public Use
  Company Number: US-ELI_LILLY_AND_COMPANY-US200906003880

PATIENT
  Sex: Male
  Weight: 72.562 kg

DRUGS (7)
  1. PROZAC [Suspect]
     Indication: DEPRESSION
     Dosage: 20 MG, DAILY (1/D)
     Route: 065
  2. COUMADIN [Concomitant]
     Dosage: UNK, DAILY (1/D)
     Route: 065
  3. ATENOLOL [Concomitant]
     Dosage: UNK, DAILY (1/D)
     Route: 065
  4. SIMVASTATIN [Concomitant]
     Dosage: 10 MG, DAILY (1/D)
     Route: 065
  5. TYLENOL (CAPLET) [Concomitant]
     Dosage: UNK, DAILY (1/D)
     Route: 065
  6. CALCIUM [Concomitant]
     Dosage: UNK, DAILY (1/D)
     Route: 065
  7. CORTISONE [Concomitant]
     Indication: ARTHRITIS
     Dosage: UNK, UNKNOWN
     Route: 065

REACTIONS (4)
  - BLOOD DISORDER [None]
  - COMA [None]
  - FALL [None]
  - WEIGHT DECREASED [None]
